FAERS Safety Report 4472565-5 (Version None)
Quarter: 2004Q4

REPORT INFORMATION
  Report Type: 
  Country: None (occurrence: None)
  Receive Date: 20041013
  Receipt Date: 20040924
  Transmission Date: 20050328
  Serious: Yes (Other)
  Sender: FDA-Public Use
  Company Number: US-JNJFOC-20040909152

PATIENT
  Sex: Female
  Weight: 79.38 kg

DRUGS (10)
  1. REMICADE [Suspect]
     Route: 042
  2. REMICADE [Suspect]
     Indication: CROHN'S DISEASE
     Route: 042
  3. PLENDIL [Concomitant]
     Indication: HYPERTENSION
  4. TOPROL-XL [Concomitant]
     Indication: HYPERTENSION
  5. PRINIVIL [Concomitant]
     Indication: HYPERTENSION
  6. ALDOMET [Concomitant]
     Indication: HYPERTENSION
  7. ZOCOR [Concomitant]
  8. PURINETHOL [Concomitant]
     Indication: CROHN'S DISEASE
  9. NEXIUM [Concomitant]
     Indication: CROHN'S DISEASE
  10. FAMOTIDINE [Concomitant]

REACTIONS (2)
  - ALOPECIA [None]
  - LUPUS-LIKE SYNDROME [None]
